FAERS Safety Report 7202924-9 (Version None)
Quarter: 2010Q4

REPORT INFORMATION
  Report Type: 
  Country: None (occurrence: None)
  Receive Date: 20101229
  Receipt Date: 20101218
  Transmission Date: 20110411
  Serious: Yes (Hospitalization)
  Sender: FDA-Public Use
  Company Number: EG-GENENTECH-311547

PATIENT
  Sex: Female
  Weight: 90 kg

DRUGS (2)
  1. RITUXIMAB [Suspect]
     Indication: RHEUMATOID ARTHRITIS
     Dosage: 1 G, UNK
     Route: 042
     Dates: start: 20091107
  2. METHOTREXATE [Concomitant]
     Indication: HYPERTENSION
     Dosage: 10 MG, 1/WEEK
     Route: 048
     Dates: start: 20010101

REACTIONS (3)
  - CHEST DISCOMFORT [None]
  - HYPOTENSION [None]
  - VISION BLURRED [None]
